FAERS Safety Report 5651227-2 (Version None)
Quarter: 2008Q1

REPORT INFORMATION
  Report Type: 
  Country: None (occurrence: None)
  Receive Date: 20080305
  Receipt Date: 20080222
  Transmission Date: 20080703
  Serious: Yes (Other)
  Sender: FDA-Public Use
  Company Number: GB-GILEAD-2008-0014940

PATIENT
  Sex: Male
  Weight: 65 kg

DRUGS (3)
  1. TRUVADA [Suspect]
     Indication: HIV INFECTION
     Route: 048
     Dates: start: 20050101, end: 20071101
  2. RITONAVIR [Concomitant]
     Route: 048
     Dates: start: 20050101
  3. ATAZANAVIR SULFATE [Concomitant]
     Route: 048
     Dates: start: 20050101

REACTIONS (5)
  - DECREASED APPETITE [None]
  - HAEMOGLOBIN DECREASED [None]
  - LETHARGY [None]
  - NAUSEA [None]
  - RENAL FAILURE [None]
